FAERS Safety Report 24924106 (Version 2)
Quarter: 2025Q3

REPORT INFORMATION
  Report Type: Spontaneous
  Country: CA (occurrence: CA)
  Receive Date: 20250204
  Receipt Date: 20250908
  Transmission Date: 20251020
  Serious: Yes (Other)
  Sender: MYLAN
  Company Number: CA-MYLANLABS-2025M1008951

PATIENT
  Age: 80 Year
  Sex: Female

DRUGS (52)
  1. AMLODIPINE [Suspect]
     Active Substance: AMLODIPINE BESYLATE
     Indication: Product used for unknown indication
  2. AMLODIPINE [Suspect]
     Active Substance: AMLODIPINE BESYLATE
     Route: 065
  3. AMLODIPINE [Suspect]
     Active Substance: AMLODIPINE BESYLATE
     Route: 065
  4. AMLODIPINE [Suspect]
     Active Substance: AMLODIPINE BESYLATE
  5. BUDESONIDE\FORMOTEROL FUMARATE [Suspect]
     Active Substance: BUDESONIDE\FORMOTEROL FUMARATE
     Indication: Asthma
  6. BUDESONIDE\FORMOTEROL FUMARATE [Suspect]
     Active Substance: BUDESONIDE\FORMOTEROL FUMARATE
     Route: 065
  7. BUDESONIDE\FORMOTEROL FUMARATE [Suspect]
     Active Substance: BUDESONIDE\FORMOTEROL FUMARATE
     Route: 065
  8. BUDESONIDE\FORMOTEROL FUMARATE [Suspect]
     Active Substance: BUDESONIDE\FORMOTEROL FUMARATE
  9. CALCIUM [Suspect]
     Active Substance: CALCIUM
     Indication: Product used for unknown indication
  10. CALCIUM [Suspect]
     Active Substance: CALCIUM
     Route: 065
  11. CALCIUM [Suspect]
     Active Substance: CALCIUM
     Route: 065
  12. CALCIUM [Suspect]
     Active Substance: CALCIUM
  13. DUPILUMAB [Suspect]
     Active Substance: DUPILUMAB
     Indication: Dermatitis atopic
  14. DUPILUMAB [Suspect]
     Active Substance: DUPILUMAB
     Route: 065
  15. DUPILUMAB [Suspect]
     Active Substance: DUPILUMAB
     Route: 065
  16. DUPILUMAB [Suspect]
     Active Substance: DUPILUMAB
  17. LANSOPRAZOLE [Suspect]
     Active Substance: LANSOPRAZOLE
     Indication: Product used for unknown indication
  18. LANSOPRAZOLE [Suspect]
     Active Substance: LANSOPRAZOLE
     Route: 065
  19. LANSOPRAZOLE [Suspect]
     Active Substance: LANSOPRAZOLE
     Route: 065
  20. LANSOPRAZOLE [Suspect]
     Active Substance: LANSOPRAZOLE
  21. MAGNESIUM CITRATE [Suspect]
     Active Substance: MAGNESIUM CITRATE
     Indication: Product used for unknown indication
  22. MAGNESIUM CITRATE [Suspect]
     Active Substance: MAGNESIUM CITRATE
     Route: 065
  23. MAGNESIUM CITRATE [Suspect]
     Active Substance: MAGNESIUM CITRATE
     Route: 065
  24. MAGNESIUM CITRATE [Suspect]
     Active Substance: MAGNESIUM CITRATE
  25. METHOTREXATE SODIUM [Suspect]
     Active Substance: METHOTREXATE SODIUM
     Indication: Dermatitis atopic
  26. METHOTREXATE SODIUM [Suspect]
     Active Substance: METHOTREXATE SODIUM
     Route: 065
  27. METHOTREXATE SODIUM [Suspect]
     Active Substance: METHOTREXATE SODIUM
     Route: 065
  28. METHOTREXATE SODIUM [Suspect]
     Active Substance: METHOTREXATE SODIUM
  29. MONTELUKAST [Suspect]
     Active Substance: MONTELUKAST
     Indication: Asthma
  30. MONTELUKAST [Suspect]
     Active Substance: MONTELUKAST
     Route: 048
  31. MONTELUKAST [Suspect]
     Active Substance: MONTELUKAST
     Route: 048
  32. MONTELUKAST [Suspect]
     Active Substance: MONTELUKAST
  33. PREDNISOLONE [Suspect]
     Active Substance: PREDNISOLONE
     Indication: Dermatitis exfoliative generalised
  34. PREDNISOLONE [Suspect]
     Active Substance: PREDNISOLONE
     Indication: Dermatitis atopic
  35. PREDNISOLONE [Suspect]
     Active Substance: PREDNISOLONE
     Route: 048
  36. PREDNISOLONE [Suspect]
     Active Substance: PREDNISOLONE
     Route: 048
  37. PREDNISOLONE [Suspect]
     Active Substance: PREDNISOLONE
  38. PREDNISOLONE [Suspect]
     Active Substance: PREDNISOLONE
  39. PREDNISOLONE [Suspect]
     Active Substance: PREDNISOLONE
     Route: 048
  40. PREDNISOLONE [Suspect]
     Active Substance: PREDNISOLONE
     Route: 048
  41. PREDNISOLONE [Suspect]
     Active Substance: PREDNISOLONE
  42. PREDNISOLONE [Suspect]
     Active Substance: PREDNISOLONE
     Route: 065
  43. PREDNISOLONE [Suspect]
     Active Substance: PREDNISOLONE
  44. PREDNISOLONE [Suspect]
     Active Substance: PREDNISOLONE
     Route: 065
  45. VITAMIN B12 [Suspect]
     Active Substance: CYANOCOBALAMIN
     Indication: Product used for unknown indication
  46. VITAMIN B12 [Suspect]
     Active Substance: CYANOCOBALAMIN
     Route: 065
  47. VITAMIN B12 [Suspect]
     Active Substance: CYANOCOBALAMIN
     Route: 065
  48. VITAMIN B12 [Suspect]
     Active Substance: CYANOCOBALAMIN
  49. VITAMIN D3 [Suspect]
     Active Substance: CHOLECALCIFEROL
     Indication: Product used for unknown indication
  50. VITAMIN D3 [Suspect]
     Active Substance: CHOLECALCIFEROL
     Route: 065
  51. VITAMIN D3 [Suspect]
     Active Substance: CHOLECALCIFEROL
     Route: 065
  52. VITAMIN D3 [Suspect]
     Active Substance: CHOLECALCIFEROL

REACTIONS (3)
  - Dermatitis exfoliative generalised [Recovered/Resolved]
  - Therapy non-responder [Recovered/Resolved]
  - Off label use [Recovered/Resolved]
